FAERS Safety Report 8457531-7 (Version None)
Quarter: 2012Q2

REPORT INFORMATION
  Report Type: 
  Country: None (occurrence: None)
  Receive Date: 20120622
  Receipt Date: 20120612
  Transmission Date: 20120825
  Serious: Yes (Other)
  Sender: FDA-Public Use
  Company Number: US-BIOGENIDEC-2012BI019489

PATIENT
  Sex: Female
  Weight: 92 kg

DRUGS (2)
  1. AVONEX [Concomitant]
     Indication: MULTIPLE SCLEROSIS
     Route: 030
  2. TYSABRI [Suspect]
     Indication: MULTIPLE SCLEROSIS
     Route: 042
     Dates: start: 20110607

REACTIONS (3)
  - MULTIPLE SCLEROSIS RELAPSE [None]
  - KNEE ARTHROPLASTY [None]
  - ANAEMIA POSTOPERATIVE [None]
